FAERS Safety Report 4635410-0 (Version None)
Quarter: 2005Q2

REPORT INFORMATION
  Report Type: 
  Country: None (occurrence: None)
  Receive Date: 20050414
  Receipt Date: 20050406
  Transmission Date: 20051028
  Serious: Yes (Hospitalization)
  Sender: FDA-Public Use
  Company Number: US-SANOFI-SYNTHELABO-A03200500992

PATIENT
  Sex: Female

DRUGS (3)
  1. AMBIEN [Suspect]
     Indication: LABOUR INDUCTION
     Route: 048
     Dates: start: 20050404, end: 20050404
  2. AMBIEN [Suspect]
     Indication: FEELING OF RELAXATION
     Route: 048
     Dates: start: 20050404, end: 20050404
  3. PRENATAL VITAMINS [Concomitant]
     Dosage: UNK
     Route: 048

REACTIONS (2)
  - DRUG EXPOSURE DURING PREGNANCY [None]
  - STILLBIRTH [None]
